FAERS Safety Report 9072463 (Version 1)
Quarter: 2013Q1

REPORT INFORMATION
  Report Type: Spontaneous
  Country: FR (occurrence: FR)
  Receive Date: 20130207
  Receipt Date: 20130207
  Transmission Date: 20140127
  Serious: Yes (Death)
  Sender: FDA-Public Use
  Company Number: FR-B.I. PHARMACEUTICALS,INC./RIDGEFIELD-2013-FF-00321FF

PATIENT
  Age: 86 None
  Sex: Male

DRUGS (11)
  1. PRADAXA [Suspect]
     Dosage: 220 MG
     Route: 048
     Dates: end: 20121216
  2. CALCIPARINE [Suspect]
     Dosage: 37500 U
     Route: 058
     Dates: start: 20121216, end: 20121217
  3. LOVENOX [Suspect]
     Dosage: 0.4 ML
     Route: 058
     Dates: start: 20121219, end: 20121230
  4. ASPEGIC [Suspect]
     Dosage: 500 MG
     Route: 048
     Dates: start: 20121219, end: 20121219
  5. ASPEGIC [Suspect]
     Dosage: 100 MG
     Route: 048
     Dates: start: 20121220, end: 20130101
  6. BISOPROLOL [Concomitant]
     Dosage: 5 MG
     Route: 048
     Dates: end: 20121216
  7. FUROSEMIDE [Concomitant]
     Dosage: 20 MG
     Route: 048
     Dates: end: 20121216
  8. DIFFU K [Concomitant]
     Route: 048
     Dates: end: 20121216
  9. AMOXICILLINE [Concomitant]
     Dosage: 3 G
     Route: 048
     Dates: start: 20121202, end: 20121213
  10. TAVANIC [Concomitant]
     Dosage: 500 MG
     Route: 042
     Dates: start: 20121206
  11. AUGMENTIN [Concomitant]
     Dosage: 3 G
     Route: 042
     Dates: start: 20121213, end: 20121217

REACTIONS (4)
  - Pulmonary alveolar haemorrhage [Fatal]
  - Ischaemic stroke [Fatal]
  - Drug ineffective [Fatal]
  - Rectal haemorrhage [Not Recovered/Not Resolved]
